FAERS Safety Report 8525953-1 (Version None)
Quarter: 2012Q3

REPORT INFORMATION
  Report Type: 
  Country: None (occurrence: None)
  Receive Date: 20120720
  Receipt Date: 20120717
  Transmission Date: 20120928
  Serious: Yes (Hospitalization)
  Sender: FDA-Public Use
  Company Number: US-GILEAD-2012-0056205

PATIENT
  Sex: Female

DRUGS (15)
  1. ASACOL [Concomitant]
  2. ARANESP [Concomitant]
  3. HEPARIN [Concomitant]
  4. FOLIC ACID [Concomitant]
  5. ASPIRIN [Concomitant]
  6. LETAIRIS [Suspect]
     Indication: PULMONARY HYPERTENSION
     Dosage: 10 MG, UNK
     Route: 048
  7. NORCO [Concomitant]
  8. FERROUS SULFATE TAB [Concomitant]
  9. PLAQUENIL [Concomitant]
  10. PREDNISONE [Concomitant]
  11. IMURAN [Concomitant]
  12. SULFASALAZINE [Concomitant]
  13. PEPCID [Concomitant]
  14. LETAIRIS [Suspect]
     Indication: SYSTEMIC LUPUS ERYTHEMATOSUS
  15. HYDROCHLOROQUINE [Concomitant]

REACTIONS (1)
  - CARDIAC TAMPONADE [None]
